FAERS Safety Report 22109202 (Version 1)
Quarter: 2023Q1

REPORT INFORMATION
  Report Type: Spontaneous
  Country: US (occurrence: None)
  Receive Date: 20230316
  Receipt Date: 20230316
  Transmission Date: 20230418
  Serious: Yes (Death)
  Sender: FDA-Public Use
  Company Number: None

PATIENT
  Age: 87 Year
  Sex: Male

DRUGS (1)
  1. LEVOFLOXACIN [Suspect]
     Active Substance: LEVOFLOXACIN
     Indication: Pneumonia aspiration
     Dosage: FREQUENCY : 3 TIMES A DAY;?
     Route: 042
     Dates: start: 20230305, end: 20230305

REACTIONS (6)
  - Anaphylactic shock [None]
  - Septic shock [None]
  - Hypotension [None]
  - Cardiac arrest [None]
  - Circulatory collapse [None]
  - Infusion related reaction [None]

NARRATIVE: CASE EVENT DATE: 20230307
